FAERS Safety Report 4979252-5 (Version None)
Quarter: 2006Q2

REPORT INFORMATION
  Report Type: 
  Country: None (occurrence: None)
  Receive Date: 20060421
  Receipt Date: 20060420
  Transmission Date: 20061013
  Serious: Yes (Other)
  Sender: FDA-Public Use
  Company Number: US-GLAXOSMITHKLINE-A0602605A

PATIENT
  Age: 36 Year
  Sex: Female

DRUGS (3)
  1. NICORETTE [Suspect]
     Indication: ILL-DEFINED DISORDER
     Dates: start: 19940101
  2. EFFEXOR [Concomitant]
  3. VITAMINS [Concomitant]

REACTIONS (1)
  - DEPENDENCE [None]
